FAERS Safety Report 9023825 (Version 2)
Quarter: 2014Q3

REPORT INFORMATION
  Report Type: Spontaneous
  Country: US (occurrence: US)
  Receive Date: 20130121
  Receipt Date: 20140812
  Transmission Date: 20150326
  Serious: Yes (Death, Hospitalization, Other)
  Sender: FDA-Public Use
  Company Number: PHEH2012US025743

PATIENT
  Sex: Male

DRUGS (1)
  1. ZOMETA [Suspect]
     Active Substance: ZOLEDRONIC ACID
     Dosage: 4 MG/5 ML, ONCE PER MONTH
     Route: 042
     Dates: start: 20100322, end: 20110725

REACTIONS (15)
  - Headache [Unknown]
  - Prostate cancer [Fatal]
  - Inadequate diet [Unknown]
  - Confusional state [Unknown]
  - Pain [Unknown]
  - Pain in jaw [Unknown]
  - Osteonecrosis of jaw [Unknown]
  - Injury [Unknown]
  - Aphagia [Unknown]
  - Oral pain [Unknown]
  - Activities of daily living impaired [Unknown]
  - Stress [Unknown]
  - Somnolence [Unknown]
  - Dysgeusia [Unknown]
  - Vision blurred [Unknown]
